FAERS Safety Report 7444924-X (Version None)
Quarter: 2011Q2

REPORT INFORMATION
  Report Type: 
  Country: None (occurrence: None)
  Receive Date: 20110429
  Receipt Date: 20110427
  Transmission Date: 20111010
  Serious: Yes (Other)
  Sender: FDA-Public Use
  Company Number: US-PFIZER INC-2011091195

PATIENT
  Sex: Male
  Weight: 14.512 kg

DRUGS (3)
  1. PEDIATRIC ADVIL [Suspect]
     Indication: NASOPHARYNGITIS
  2. PEDIATRIC ADVIL [Suspect]
     Indication: PYREXIA
     Dosage: UNK
     Dates: start: 20110328, end: 20110401
  3. PEDIATRIC ADVIL [Suspect]
     Indication: PULMONARY CONGESTION

REACTIONS (4)
  - OVERDOSE [None]
  - IRRITABILITY [None]
  - PERSONALITY CHANGE [None]
  - ACCIDENTAL DRUG INTAKE BY CHILD [None]
